FAERS Safety Report 6013729-9 (Version None)
Quarter: 2008Q4

REPORT INFORMATION
  Report Type: 
  Country: None (occurrence: None)
  Receive Date: 20081219
  Receipt Date: 20081208
  Transmission Date: 20090506
  Serious: Yes (Death, Hospitalization)
  Sender: FDA-Public Use
  Company Number: B0488449A

PATIENT
  Age: 64 Year
  Sex: Female

DRUGS (4)
  1. HYCAMTIN [Suspect]
     Dosage: 25MG PER DAY
     Route: 042
     Dates: start: 20070701
  2. ZOFRAN [Concomitant]
     Dosage: 16MG PER DAY
     Route: 042
  3. DEXAMETHASONE [Concomitant]
     Dosage: 8MG PER DAY
     Route: 042
  4. TAVEGYL [Concomitant]
     Dosage: 25MG PER DAY
     Route: 030

REACTIONS (12)
  - ANAEMIA [None]
  - ASTHENIA [None]
  - AURICULAR SWELLING [None]
  - DEATH [None]
  - DIARRHOEA [None]
  - HAEMOGLOBIN DECREASED [None]
  - HYPERBILIRUBINAEMIA [None]
  - LEUKOPENIA [None]
  - NEUTROPENIA [None]
  - PRURITUS [None]
  - THROMBOCYTOPENIA [None]
  - VOMITING [None]
